FAERS Safety Report 14721436 (Version 5)
Quarter: 2019Q3

REPORT INFORMATION
  Report Type: Spontaneous
  Country: US (occurrence: US)
  Receive Date: 20180405
  Receipt Date: 20190724
  Transmission Date: 20191004
  Serious: Yes (Other)
  Sender: FDA-Public Use
  Company Number: US-GLAXOSMITHKLINE-US2018GSK058045

PATIENT
  Sex: Male

DRUGS (5)
  1. OMEPRAZOLE. [Suspect]
     Active Substance: OMEPRAZOLE
     Indication: GASTROOESOPHAGEAL REFLUX DISEASE
     Dosage: 20 MG, QD
     Route: 048
  2. PANTOPRAZOLE [Suspect]
     Active Substance: PANTOPRAZOLE
     Dosage: 20 MG, UNK
     Route: 065
  3. PREVACID [Suspect]
     Active Substance: LANSOPRAZOLE
     Indication: PRODUCT USED FOR UNKNOWN INDICATION
     Dosage: UNK
     Route: 065
  4. PREVACID [Suspect]
     Active Substance: LANSOPRAZOLE
     Indication: PRODUCT USED FOR UNKNOWN INDICATION
     Dosage: UNK
     Route: 065
  5. PANTOPRAZOLE [Suspect]
     Active Substance: PANTOPRAZOLE
     Indication: GASTROOESOPHAGEAL REFLUX DISEASE
     Dosage: 40 MG, QD
     Route: 065

REACTIONS (13)
  - Renal failure [Unknown]
  - Nocturia [Unknown]
  - Nephrotic syndrome [Unknown]
  - Hypertensive nephropathy [Unknown]
  - Urinary tract obstruction [Unknown]
  - Acute kidney injury [Unknown]
  - Mesangioproliferative glomerulonephritis [Unknown]
  - Chronic kidney disease [Unknown]
  - Proteinuria [Unknown]
  - Diabetic nephropathy [Unknown]
  - Nephrogenic anaemia [Unknown]
  - Micturition urgency [Unknown]
  - Haematuria [Unknown]
